FAERS Safety Report 24078266 (Version 1)
Quarter: 2024Q3

REPORT INFORMATION
  Report Type: Spontaneous
  Country: US (occurrence: US)
  Receive Date: 20240711
  Receipt Date: 20240711
  Transmission Date: 20241017
  Serious: Yes (Hospitalization, Other)
  Sender: PFIZER
  Company Number: US-PFIZER INC-202400208920

PATIENT
  Age: 55 Year
  Sex: Male

DRUGS (1)
  1. RITUXIMAB [Suspect]
     Active Substance: RITUXIMAB
     Dosage: UNK
     Dates: start: 20240124, end: 20240125

REACTIONS (14)
  - Fatigue [Recovered/Resolved]
  - Dyspnoea [Recovered/Resolved]
  - Diarrhoea [Recovered/Resolved]
  - Anal incontinence [Recovered/Resolved]
  - Orthostatic hypotension [Recovered/Resolved]
  - Back pain [Recovered/Resolved]
  - Sepsis [Recovered/Resolved]
  - Hypovolaemic shock [Recovered/Resolved]
  - Multi-organ disorder [Recovered/Resolved]
  - Enterobacter infection [Recovered/Resolved]
  - Pancreatitis acute [Recovered/Resolved]
  - Bacteraemia [Recovered/Resolved]
  - Asthenia [Unknown]
  - Abdominal discomfort [Unknown]

NARRATIVE: CASE EVENT DATE: 20240507
